FAERS Safety Report 7574603-X (Version None)
Quarter: 2011Q2

REPORT INFORMATION
  Report Type: 
  Country: None (occurrence: None)
  Receive Date: 20110627
  Receipt Date: 20110131
  Transmission Date: 20111010
  Serious: Yes (Hospitalization, Other)
  Sender: FDA-Public Use
  Company Number: US-BAYER-200939487NA

PATIENT
  Age: 42 Year
  Sex: Female
  Weight: 64 kg

DRUGS (7)
  1. YASMIN [Suspect]
     Indication: PRODUCT USED FOR UNKNOWN INDICATION
     Route: 048
  2. IBUPROFEN [Concomitant]
     Dates: start: 20000101
  3. PENICILLIN [Concomitant]
  4. ASCORBIC ACID [Concomitant]
     Dates: start: 20000101
  5. NICOTINAMIDE [Concomitant]
     Route: 048
  6. YAZ [Suspect]
     Indication: PRODUCT USED FOR UNKNOWN INDICATION
     Route: 048
     Dates: start: 20080601, end: 20081001
  7. AMOXICILLIN [Concomitant]

REACTIONS (4)
  - INJURY [None]
  - OEDEMA PERIPHERAL [None]
  - THROMBOSIS [None]
  - PULMONARY EMBOLISM [None]
